FAERS Safety Report 4450657-4 (Version None)
Quarter: 2004Q3

REPORT INFORMATION
  Report Type: 
  Country: None (occurrence: None)
  Receive Date: 20040914
  Receipt Date: 20040831
  Transmission Date: 20050211
  Serious: Yes (Other)
  Sender: FDA-Public Use
  Company Number: 2004048306

PATIENT
  Age: 78 Year
  Sex: Male
  Weight: 92.9874 kg

DRUGS (12)
  1. ACCUPRIL [Suspect]
     Indication: BLOOD PRESSURE
     Dosage: 80 MG (40 MG, 2 IN 1 D), ORAL
     Route: 048
  2. VIAGRA [Suspect]
     Indication: BLOOD PRESSURE
     Dosage: 100 MG (100 MG,  AS NECESSARY), ORAL
     Route: 048
  3. LABETALOL HCL [Suspect]
     Indication: BLOOD PRESSURE
     Dosage: 800 MG (400 MG, 2 IN 1 D), ORAL
     Route: 048
  4. ALL OTHER THERAPEUTIC PRODUCTS (ALL OTHER THERAPEUTIC PRODUCTS) [Suspect]
     Indication: BLOOD PRESSURE
     Dosage: 480 MG (240 MG, 2 IN 1 D), ORAL
     Route: 048
  5. NISOLDIPINE (NISOLDIPINE) [Suspect]
     Indication: CHEST PAIN
  6. NISOLDIPINE (NISOLDIPINE) [Suspect]
     Indication: HYPERTENSION
  7. FUROSEMIDE [Suspect]
     Indication: JOINT SWELLING
  8. FUROSEMIDE [Suspect]
     Indication: OEDEMA PERIPHERAL
  9. ASPIRIN [Concomitant]
  10. VITAMINS (VITAMINS) [Concomitant]
  11. LORATADINE [Concomitant]
  12. POTASSIUM (POTASSIUM) [Concomitant]

REACTIONS (4)
  - BLOOD PRESSURE INCREASED [None]
  - CHEST PAIN [None]
  - LOSS OF CONSCIOUSNESS [None]
  - OEDEMA PERIPHERAL [None]
